FAERS Safety Report 7741376-7 (Version None)
Quarter: 2011Q3

REPORT INFORMATION
  Report Type: 
  Country: None (occurrence: None)
  Receive Date: 20110909
  Receipt Date: 20110902
  Transmission Date: 20111222
  Serious: Yes (Other)
  Sender: FDA-Public Use
  Company Number: PHHY2011JP78869

PATIENT
  Age: 56 Year
  Sex: Female

DRUGS (2)
  1. CYCLOSPORINE [Suspect]
     Indication: OVERLAP SYNDROME
     Dosage: UNK UKN, UNK
  2. CORTICOSTEROIDS [Concomitant]
     Dosage: UNK UKN, UNK

REACTIONS (2)
  - MUSCLE ATROPHY [None]
  - DERMATOMYOSITIS [None]
